FAERS Safety Report 5220793-3 (Version None)
Quarter: 2007Q1

REPORT INFORMATION
  Report Type: 
  Country: None (occurrence: None)
  Receive Date: 20070123
  Receipt Date: 20070115
  Transmission Date: 20070707
  Serious: Yes (Disabling)
  Sender: FDA-Public Use
  Company Number: CHNY2007CA00461

PATIENT
  Age: 85 Year
  Sex: Female
  Weight: 40.8 kg

DRUGS (1)
  1. HABITROL [Suspect]
     Indication: SMOKING CESSATION THERAPY
     Dosage: SEE IMAGE
     Dates: start: 20070103

REACTIONS (2)
  - CONCOMITANT DISEASE AGGRAVATED [None]
  - PAIN IN EXTREMITY [None]
